FAERS Safety Report 10274758 (Version 4)
Quarter: 2014Q4

REPORT INFORMATION
  Report Type: Spontaneous
  Country: US (occurrence: US)
  Receive Date: 20140702
  Receipt Date: 20141031
  Transmission Date: 20150528
  Serious: No
  Sender: FDA-Public Use
  Company Number: US-GILEAD-2014-0107186

PATIENT
  Age: 76 Year
  Sex: Female

DRUGS (1)
  1. LETAIRIS [Suspect]
     Active Substance: AMBRISENTAN
     Indication: PRODUCT USED FOR UNKNOWN INDICATION
     Dosage: 10 MG, QD
     Route: 065
     Dates: start: 20140508

REACTIONS (7)
  - Swelling [Recovering/Resolving]
  - Abdominal distension [Recovering/Resolving]
  - Unevaluable event [Recovering/Resolving]
  - Diarrhoea [Recovering/Resolving]
  - Peripheral swelling [Recovering/Resolving]
  - Blood urine present [Recovering/Resolving]
  - Gastric dilatation [Recovering/Resolving]
